FAERS Safety Report 12657133 (Version 1)
Quarter: 2016Q3

REPORT INFORMATION
  Report Type: Not Available
  Country: ES (occurrence: ES)
  Receive Date: 20160816
  Receipt Date: 20160816
  Transmission Date: 20161109
  Serious: Yes (Other)
  Sender: FDA-Public Use
  Company Number: ES-AKORN-37107

PATIENT
  Age: 42 Year
  Sex: Male

DRUGS (1)
  1. COSOPT [Suspect]
     Active Substance: DORZOLAMIDE HYDROCHLORIDE\TIMOLOL MALEATE

REACTIONS (1)
  - Raynaud^s phenomenon [Recovered/Resolved]

NARRATIVE: CASE EVENT DATE: 20160509
